FAERS Safety Report 10976150 (Version 2)
Quarter: 2015Q2

REPORT INFORMATION
  Report Type: Spontaneous
  Country: US (occurrence: US)
  Receive Date: 20150401
  Receipt Date: 20150525
  Transmission Date: 20150821
  Serious: No
  Sender: FDA-Public Use
  Company Number: US-JNJFOC-20140415428

PATIENT
  Sex: Male

DRUGS (1)
  1. RISPERDAL [Suspect]
     Active Substance: RISPERIDONE
     Indication: SCHIZOPHRENIA
     Dosage: 3 MG AND 1.5 MG
     Route: 048
     Dates: start: 20040301, end: 20130506

REACTIONS (3)
  - Emotional disorder [Unknown]
  - Fatigue [Unknown]
  - Gynaecomastia [Unknown]
